FAERS Safety Report 5400325-7 (Version None)
Quarter: 2007Q3

REPORT INFORMATION
  Report Type: 
  Country: None (occurrence: None)
  Receive Date: 20070730
  Receipt Date: 20070719
  Transmission Date: 20080115
  Serious: Yes (Other)
  Sender: FDA-Public Use
  Company Number: US-AMGEN-KDL232492

PATIENT
  Sex: Male

DRUGS (3)
  1. PROCRIT [Suspect]
     Indication: ANAEMIA OF MALIGNANT DISEASE
     Route: 058
     Dates: start: 20060623, end: 20061023
  2. PRILOSEC [Concomitant]
  3. LUNESTA [Concomitant]

REACTIONS (2)
  - APLASIA PURE RED CELL [None]
  - ERYTHEMA INFECTIOSUM [None]
